FAERS Safety Report 6838192-7 (Version None)
Quarter: 2010Q3

REPORT INFORMATION
  Report Type: 
  Country: None (occurrence: None)
  Receive Date: 20100713
  Receipt Date: 20070602
  Transmission Date: 20110219
  Serious: No
  Sender: FDA-Public Use
  Company Number: US-PFIZER INC-2007045983

PATIENT
  Sex: Male
  Weight: 90.909 kg

DRUGS (3)
  1. CHANTIX [Suspect]
     Indication: SMOKING CESSATION THERAPY
     Dates: start: 20070401, end: 20070530
  2. DIET FORMULATIONS FOR TREATMENT OF OBESITY [Concomitant]
  3. VITAMIN B-12 [Concomitant]

REACTIONS (1)
  - DRUG SCREEN POSITIVE [None]
